FAERS Safety Report 24777429 (Version 1)
Quarter: 2024Q4

REPORT INFORMATION
  Report Type: Spontaneous
  Country: CA (occurrence: CA)
  Receive Date: 20241226
  Receipt Date: 20241226
  Transmission Date: 20250115
  Serious: Yes (Hospitalization, Other)
  Sender: Kenvue
  Company Number: CA-JOHNSON + JOHNSON CONSUMER SERVICES EAME-20241204931

PATIENT

DRUGS (6)
  1. IBUPROFEN [Suspect]
     Active Substance: IBUPROFEN
     Indication: Upper respiratory tract infection
     Dosage: UNK
     Route: 048
  2. IBUPROFEN [Suspect]
     Active Substance: IBUPROFEN
     Indication: Respiratory symptom
  3. IBUPROFEN [Suspect]
     Active Substance: IBUPROFEN
     Indication: Pyrexia
  4. ASPIRIN [Suspect]
     Active Substance: ASPIRIN
     Indication: Upper respiratory tract infection
     Dosage: UNK
     Route: 048
  5. ASPIRIN [Suspect]
     Active Substance: ASPIRIN
     Indication: Respiratory symptom
  6. ASPIRIN [Suspect]
     Active Substance: ASPIRIN
     Indication: Pyrexia

REACTIONS (7)
  - Upper respiratory tract infection [Unknown]
  - Decreased appetite [Unknown]
  - Pyrexia [Unknown]
  - Respiratory symptom [Unknown]
  - Erythema [Unknown]
  - Gastritis [Unknown]
  - Haematemesis [Unknown]
